FAERS Safety Report 6733740-X (Version None)
Quarter: 2010Q2

REPORT INFORMATION
  Report Type: 
  Country: None (occurrence: None)
  Receive Date: 20100520
  Receipt Date: 20100510
  Transmission Date: 20101027
  Serious: Yes (Other)
  Sender: FDA-Public Use
  Company Number: PHHY2010JP30673

PATIENT
  Age: 5 Year

DRUGS (3)
  1. CERTICAN [Suspect]
     Indication: HEART TRANSPLANT
     Dosage: 2 MG, QD
     Route: 048
  2. ROCEPHIN [Interacting]
     Route: 042
  3. PROGRAF [Concomitant]
     Route: 048

REACTIONS (3)
  - CHOLELITHIASIS [None]
  - DRUG INTERACTION [None]
  - ENTEROCOLITIS [None]
